FAERS Safety Report 4840148-0 (Version None)
Quarter: 2005Q4

REPORT INFORMATION
  Report Type: 
  Country: None (occurrence: None)
  Receive Date: 20051125
  Receipt Date: 20051114
  Transmission Date: 20060501
  Serious: Yes (Other)
  Sender: FDA-Public Use
  Company Number: 2005155427

PATIENT
  Age: 28 Year
  Sex: Male
  Weight: 75.2971 kg

DRUGS (1)
  1. NEOSPORIN [Suspect]
     Indication: SKIN IRRITATION
     Dosage: 1/2 OF THUMB LENGTH TWICE IN ONE DAY, TOPICAL
     Route: 061
     Dates: start: 20040701, end: 20040701

REACTIONS (13)
  - BACK PAIN [None]
  - DIZZINESS [None]
  - EPIDIDYMITIS [None]
  - HYPERTENSION [None]
  - HYPOTENSION [None]
  - INFLAMMATION [None]
  - LOCALISED OEDEMA [None]
  - OEDEMA PERIPHERAL [None]
  - PAIN IN EXTREMITY [None]
  - SHOULDER PAIN [None]
  - TESTICULAR HAEMORRHAGE [None]
  - TESTICULAR SWELLING [None]
  - TESTICULAR TORSION [None]
